FAERS Safety Report 5032413-1 (Version None)
Quarter: 2006Q2

REPORT INFORMATION
  Report Type: 
  Country: None (occurrence: None)
  Receive Date: 20060508
  Receipt Date: 20050921
  Transmission Date: 20061013
  Serious: Yes (Hospitalization)
  Sender: FDA-Public Use
  Company Number: 234438K05USA

PATIENT
  Age: 58 Year
  Sex: Female

DRUGS (4)
  1. REBIF [Suspect]
     Indication: MULTIPLE SCLEROSIS
  2. EFFEXOR [Concomitant]
  3. ULTRAM [Concomitant]
  4. BACLOFEN [Concomitant]

REACTIONS (5)
  - ASTHENIA [None]
  - DIFFICULTY IN WALKING [None]
  - FALL [None]
  - FATIGUE [None]
  - MULTIPLE SCLEROSIS RELAPSE [None]
